FAERS Safety Report 7296147-5 (Version None)
Quarter: 2011Q1

REPORT INFORMATION
  Report Type: 
  Country: None (occurrence: None)
  Receive Date: 20110216
  Receipt Date: 20110214
  Transmission Date: 20110831
  Serious: Yes (Hospitalization)
  Sender: FDA-Public Use
  Company Number: FR-ROCHE-753929

PATIENT
  Sex: Male
  Weight: 68 kg

DRUGS (5)
  1. CYMEVENE [Suspect]
     Dosage: DOSAGE WAS DECREASED
     Route: 042
  2. NEORAL [Concomitant]
     Indication: RENAL TRANSPLANT
     Dates: start: 20091206
  3. LASIX [Concomitant]
     Dosage: FREQUENCY: DAILY
  4. CYMEVENE [Suspect]
     Dosage: FORM-INFUSION
     Route: 042
     Dates: start: 20101204
  5. CELLCEPT [Concomitant]

REACTIONS (2)
  - RENAL FAILURE ACUTE [None]
  - ACUTE PULMONARY OEDEMA [None]
